FAERS Safety Report 11757739 (Version 4)
Quarter: 2015Q4

REPORT INFORMATION
  Report Type: Spontaneous
  Country: AU (occurrence: AU)
  Receive Date: 20151120
  Receipt Date: 20151204
  Transmission Date: 20160304
  Serious: Yes (Other)
  Sender: FDA-Public Use
  Company Number: AU-BIOGENIDEC-2015BI132839

PATIENT
  Sex: Female

DRUGS (1)
  1. TYSABRI [Suspect]
     Active Substance: NATALIZUMAB
     Indication: RELAPSING-REMITTING MULTIPLE SCLEROSIS

REACTIONS (14)
  - Temperature intolerance [Unknown]
  - Band sensation [Recovered/Resolved]
  - Fatigue [Unknown]
  - Spinal fusion surgery [Recovered/Resolved]
  - Syncope [Unknown]
  - Bronchitis [Unknown]
  - Drug ineffective [Unknown]
  - Sinusitis [Not Recovered/Not Resolved]
  - Respiratory syncytial virus infection [Unknown]
  - Bronchiolitis [Unknown]
  - Muscle spasms [Recovered/Resolved]
  - Pneumonia [Unknown]
  - Back pain [Unknown]
  - Pain [Unknown]
